FAERS Safety Report 12917824 (Version 7)
Quarter: 2017Q1

REPORT INFORMATION
  Report Type: Report from Study
  Country: None (occurrence: CA)
  Receive Date: 20161107
  Receipt Date: 20170306
  Transmission Date: 20170428
  Serious: Yes (Hospitalization)
  Sender: FDA-Public Use
  Company Number: CA-ABBVIE-16P-028-1772409-00

PATIENT
  Age: 72 Year
  Sex: Male
  Weight: 90.7 kg

DRUGS (4)
  1. TECHNIVIE [Suspect]
     Active Substance: OMBITASVIR HEMINONAHYDRATE\PARITAPREVIR DIHYDRATE\RITONAVIR
     Indication: HEPATITIS C
     Dosage: 150/100/25MG
     Route: 048
     Dates: start: 20161026
  2. MODERIBA [Interacting]
     Active Substance: RIBAVIRIN
     Indication: HEPATITIS C
     Route: 048
     Dates: start: 20161026
  3. MODERIBA [Interacting]
     Active Substance: RIBAVIRIN
     Dosage: DOSE DECREASED
     Route: 048
     Dates: start: 20161101, end: 20161102
  4. TACROLIMUS. [Interacting]
     Active Substance: TACROLIMUS
     Indication: PRODUCT USED FOR UNKNOWN INDICATION
     Route: 065

REACTIONS (20)
  - Acute kidney injury [Recovered/Resolved]
  - Dyspnoea [Unknown]
  - Abdominal pain upper [Unknown]
  - Nausea [Recovered/Resolved]
  - Biliary tract disorder [Unknown]
  - Toxicity to various agents [Recovered/Resolved]
  - Chest pain [Unknown]
  - Abdominal pain [Unknown]
  - Vomiting [Recovered/Resolved]
  - Cholangitis [Unknown]
  - Pyrexia [Recovered/Resolved]
  - Gastroenteritis [Unknown]
  - Abdominal pain [Recovered/Resolved]
  - Transaminases increased [Unknown]
  - Drug interaction [Unknown]
  - Gait disturbance [Unknown]
  - Diarrhoea [Unknown]
  - Asthenia [Unknown]
  - Nausea [Recovered/Resolved]
  - Chills [Unknown]

NARRATIVE: CASE EVENT DATE: 20161031
